FAERS Safety Report 9367335 (Version 1)
Quarter: 2013Q2

REPORT INFORMATION
  Report Type: Spontaneous
  Country: BR (occurrence: BR)
  Receive Date: 20130625
  Receipt Date: 20130625
  Transmission Date: 20140414
  Serious: Yes (Hospitalization, Disabling, Other)
  Sender: FDA-Public Use
  Company Number: BR-009507513-1306BRA009830

PATIENT
  Age: 65 Year
  Sex: Female
  Weight: 82 kg

DRUGS (11)
  1. PEGINTRON [Suspect]
     Indication: HEPATITIS C
     Dosage: UNK, QW
     Route: 058
     Dates: start: 201105, end: 201205
  2. RIBAVIRIN [Suspect]
     Indication: HEPATITIS C
     Dosage: UNK, QD
     Route: 048
     Dates: start: 201105, end: 201205
  3. RIBAVIRIN [Suspect]
     Dosage: UNK, QD
     Route: 048
  4. RIBAVIRIN [Suspect]
     Dosage: UNK, QD
     Route: 048
     Dates: end: 201203
  5. RIBAVIRIN [Suspect]
     Dosage: UNK
     Route: 048
     Dates: start: 201203, end: 201205
  6. LOSARTAN POTASSIUM [Concomitant]
     Indication: HYPERTENSION
     Dosage: 50 MG, QAM
     Dates: start: 1993
  7. HIGROTON [Concomitant]
     Indication: HYPERTENSION
     Dosage: 25 MG, QAM
     Dates: start: 1993
  8. LEVOTHYROXINE SODIUM [Concomitant]
     Indication: THYROID DISORDER
     Dosage: 100 MG, QAM
     Dates: start: 2011
  9. OMEPRAZOLE [Concomitant]
     Indication: COUGH
     Dosage: UNK, PRN
     Dates: start: 2011
  10. OMEPRAZOLE [Concomitant]
     Indication: GASTRIC DISORDER
  11. METFORMIN HYDROCHLORIDE [Concomitant]
     Indication: DIABETES MELLITUS
     Dosage: 500 MG, QAM
     Dates: start: 2011

REACTIONS (8)
  - Knee arthroplasty [Unknown]
  - Asthenia [Recovered/Resolved]
  - Bone disorder [Unknown]
  - Mitral valve disease [Unknown]
  - Weight decreased [Recovered/Resolved]
  - Dizziness [Recovered/Resolved]
  - Decreased appetite [Recovered/Resolved]
  - Overdose [Unknown]
